FAERS Safety Report 6317650-8 (Version None)
Quarter: 2009Q3

REPORT INFORMATION
  Report Type: 
  Country: None (occurrence: None)
  Receive Date: 20090821
  Receipt Date: 20090813
  Transmission Date: 20100115
  Serious: Yes (Other)
  Sender: FDA-Public Use
  Company Number: BR-ROXANE LABORATORIES, INC.-2009-RO-00822RO

PATIENT
  Age: 78 Year
  Sex: Female

DRUGS (4)
  1. PREDNISONE [Suspect]
     Indication: PEMPHIGOID
  2. AZATHIOPRINE [Suspect]
     Indication: IMMUNOSUPPRESSANT DRUG THERAPY
     Dates: start: 19990101
  3. THALIDOMIDE [Suspect]
     Indication: PEMPHIGOID
  4. DAPSONE [Suspect]
     Dates: start: 20030101

REACTIONS (5)
  - DERMATITIS BULLOUS [None]
  - LARYNGEAL STENOSIS [None]
  - NASAL DISORDER [None]
  - ORAL DISORDER [None]
  - PEMPHIGOID [None]
